FAERS Safety Report 24131070 (Version 1)
Quarter: 2024Q3

REPORT INFORMATION
  Report Type: Spontaneous
  Country: KW (occurrence: KW)
  Receive Date: 20240724
  Receipt Date: 20240724
  Transmission Date: 20241016
  Serious: Yes (Hospitalization)
  Sender: INVENTIA HEALTHCARE
  Company Number: KW-IHL-000591

PATIENT
  Age: 16 Year
  Sex: Male

DRUGS (2)
  1. PALIPERIDONE [Suspect]
     Active Substance: PALIPERIDONE
     Indication: Schizoaffective disorder
     Route: 030
  2. PALIPERIDONE [Suspect]
     Active Substance: PALIPERIDONE
     Indication: Schizoaffective disorder
     Route: 065

REACTIONS (5)
  - Pelvic floor dysfunction [Recovered/Resolved]
  - Oculogyric crisis [Recovered/Resolved]
  - Musculoskeletal stiffness [Recovered/Resolved]
  - Therapy partial responder [Unknown]
  - Treatment noncompliance [Unknown]
